FAERS Safety Report 8000433-0 (Version None)
Quarter: 2011Q4

REPORT INFORMATION
  Report Type: 
  Country: None (occurrence: None)
  Receive Date: 20111222
  Receipt Date: 20110411
  Transmission Date: 20120403
  Serious: No
  Sender: FDA-Public Use
  Company Number: US-BRISTOL-MYERS SQUIBB COMPANY-15665854

PATIENT
  Age: 51 Year
  Sex: Male

DRUGS (4)
  1. ZOLOFT [Concomitant]
  2. PRAVACHOL [Suspect]
     Dates: start: 20101201
  3. ANTIBIOTICS [Concomitant]
  4. PLAVIX [Concomitant]

REACTIONS (1)
  - TINNITUS [None]
